FAERS Safety Report 16242427 (Version 3)
Quarter: 2019Q3

REPORT INFORMATION
  Report Type: Spontaneous
  Country: PT (occurrence: PT)
  Receive Date: 20190426
  Receipt Date: 20190823
  Transmission Date: 20191004
  Serious: Yes (Hospitalization, Other)
  Sender: FDA-Public Use
  Company Number: PT-ACCORD-123716

PATIENT
  Age: 83 Year
  Sex: Female

DRUGS (15)
  1. FUROSEMIDE. [Suspect]
     Active Substance: FUROSEMIDE
     Indication: PRODUCT USED FOR UNKNOWN INDICATION
     Dosage: 80 MILLIGRAM, QD (40 MG, BID)
     Route: 065
  2. ENOXAPARIN [Concomitant]
     Active Substance: ENOXAPARIN
     Indication: PRODUCT USED FOR UNKNOWN INDICATION
     Dosage: UNK
     Route: 065
  3. ALLOPURINOL. [Suspect]
     Active Substance: ALLOPURINOL
     Indication: PRODUCT USED FOR UNKNOWN INDICATION
     Dosage: 100 MILLIGRAM, QD
     Route: 065
  4. ATORVASTATIN/ATORVASTATIN CALCIUM [Suspect]
     Active Substance: ATORVASTATIN CALCIUM
     Indication: PRODUCT USED FOR UNKNOWN INDICATION
     Dosage: 20 MILLIGRAM, QD
     Route: 065
  5. LOSARTAN. [Suspect]
     Active Substance: LOSARTAN
     Indication: PRODUCT USED FOR UNKNOWN INDICATION
     Dosage: 50 MILLIGRAM, QD
     Route: 065
  6. SITAGLIPTIN/SITAGLIPTIN PHOSPHATE [Suspect]
     Active Substance: SITAGLIPTIN PHOSPHATE
     Indication: PRODUCT USED FOR UNKNOWN INDICATION
     Dosage: 25 MILLIGRAM, QD
     Route: 065
  7. VENLAFAXINE/VENLAFAXINE HYDROCHLORIDE [Suspect]
     Active Substance: VENLAFAXINE HYDROCHLORIDE
     Indication: PRODUCT USED FOR UNKNOWN INDICATION
     Dosage: 75 MILLIGRAM, QD
     Route: 065
  8. HYDROXYZINE [Suspect]
     Active Substance: HYDROXYZINE HYDROCHLORIDE
     Indication: PRURITUS
     Dosage: 75 MILLIGRAM, QD (25 MG, TID   )
     Route: 065
  9. FOLIC ACID. [Suspect]
     Active Substance: FOLIC ACID
     Indication: PRODUCT USED FOR UNKNOWN INDICATION
  10. INSULIN ISOPHANE BOVINE/INSULIN ISOPHANE PORCINE/ISOPHANE INSULIN [Suspect]
     Active Substance: INSULIN BEEF/PORK
     Indication: TYPE 2 DIABETES MELLITUS
     Dosage: 38 + 26 U
  11. INSULIN [Concomitant]
     Active Substance: INSULIN NOS
     Indication: PRODUCT USED FOR UNKNOWN INDICATION
     Dosage: UNK
     Route: 065
  12. DIAZEPAM. [Suspect]
     Active Substance: DIAZEPAM
     Indication: PRODUCT USED FOR UNKNOWN INDICATION
     Dosage: 10 MILLIGRAM, QD
     Route: 065
  13. FUROSEMIDE. [Concomitant]
     Active Substance: FUROSEMIDE
     Dosage: 40 MG, TID
  14. CARVEDILOL/CARVEDILOL HYDROCHLODRIDE [Suspect]
     Active Substance: CARVEDILOL HYDROCHLORIDE
     Indication: PRODUCT USED FOR UNKNOWN INDICATION
     Dosage: 12.5 MILLIGRAM, QD (6.25 MG, BID)
     Route: 065
  15. IRON [Suspect]
     Active Substance: IRON
     Indication: PRODUCT USED FOR UNKNOWN INDICATION
     Dosage: 90 MILLIGRAM, QD
     Route: 065

REACTIONS (17)
  - Cholestasis [Recovered/Resolved]
  - Metabolic acidosis [Recovered/Resolved]
  - Condition aggravated [Unknown]
  - Drug-induced liver injury [Recovered/Resolved]
  - Pruritus [Unknown]
  - Urine output decreased [Recovered/Resolved]
  - Acidosis [Recovering/Resolving]
  - Dehydration [Recovering/Resolving]
  - Hepatocellular injury [Recovering/Resolving]
  - Hepatic necrosis [Recovered/Resolved]
  - Hepatitis [Recovering/Resolving]
  - Hyperkalaemia [Recovered/Resolved]
  - Mixed liver injury [Recovered/Resolved]
  - Oedema peripheral [Recovering/Resolving]
  - Cardiac murmur [Recovering/Resolving]
  - Hepatotoxicity [Recovering/Resolving]
  - Hyperglycaemia [Recovered/Resolved]
